FAERS Safety Report 7709346-2 (Version None)
Quarter: 2011Q3

REPORT INFORMATION
  Report Type: 
  Country: None (occurrence: None)
  Receive Date: 20110825
  Receipt Date: 20110818
  Transmission Date: 20111222
  Serious: Yes (Hospitalization)
  Sender: FDA-Public Use
  Company Number: FR-PFIZER INC-2011190186

PATIENT
  Age: 53 Year
  Sex: Male

DRUGS (7)
  1. ARANESP [Concomitant]
     Indication: ANAEMIA
     Dosage: 500 UG, EVERY 3 WEEKS
     Route: 042
  2. ZYVOX [Suspect]
     Indication: STAPHYLOCOCCAL SEPSIS
     Dosage: 600 MG, 1X/DAY
     Route: 048
     Dates: start: 20110720, end: 20110727
  3. FOSFOMYCIN [Suspect]
     Indication: STAPHYLOCOCCAL SEPSIS
     Dosage: 4 G, 3X/DAY
     Route: 042
     Dates: start: 20110720, end: 20110727
  4. LOVENOX [Concomitant]
     Indication: THROMBOSIS PROPHYLAXIS
     Dosage: 1 DF, 1X/DAY
     Route: 058
     Dates: start: 20110617, end: 20110714
  5. CUBICIN [Suspect]
     Dosage: UNK
     Route: 042
     Dates: start: 20110718, end: 20110720
  6. GUTRON [Concomitant]
     Indication: HYPOTENSION
     Dosage: 5 MG, 2X/WEEK
     Route: 048
     Dates: start: 20110617
  7. LYRICA [Concomitant]
     Indication: PAIN
     Dosage: 150 MG, 2X/DAY
     Route: 048
     Dates: start: 20110617

REACTIONS (1)
  - CONDITION AGGRAVATED [None]
